FAERS Safety Report 16427643 (Version 6)
Quarter: 2019Q3

REPORT INFORMATION
  Report Type: Spontaneous
  Country: US (occurrence: US)
  Receive Date: 20190613
  Receipt Date: 20190923
  Transmission Date: 20191004
  Serious: Yes (Hospitalization, Other)
  Sender: FDA-Public Use
  Company Number: US-PFIZER INC-2019247358

PATIENT
  Age: 47 Year
  Sex: Female

DRUGS (1)
  1. NORPACE [Suspect]
     Active Substance: DISOPYRAMIDE PHOSPHATE
     Indication: WOLFF-PARKINSON-WHITE SYNDROME
     Dosage: 100 MG, 3X/DAY
     Dates: start: 1986

REACTIONS (4)
  - Upper limb fracture [Not Recovered/Not Resolved]
  - Impaired driving ability [Unknown]
  - Limb injury [Not Recovered/Not Resolved]
  - Rotator cuff syndrome [Not Recovered/Not Resolved]

NARRATIVE: CASE EVENT DATE: 200104
